FAERS Safety Report 10220837 (Version 1)
Quarter: 2014Q2

REPORT INFORMATION
  Report Type: Spontaneous
  Country: ES (occurrence: ES)
  Receive Date: 20140606
  Receipt Date: 20140606
  Transmission Date: 20141212
  Serious: Yes (Hospitalization)
  Sender: FDA-Public Use
  Company Number: ES-RANBAXY-2014RR-81796

PATIENT
  Age: 35 Year
  Sex: Female

DRUGS (4)
  1. RISPERIDONE [Suspect]
     Indication: PSYCHOTIC DISORDER
     Dosage: 9 MG, DAILY
     Route: 065
  2. RISPERIDONE [Suspect]
     Indication: PSYCHOTIC DISORDER
     Dosage: 6 MG, DAILY
     Route: 065
  3. ZUCLOPENTHIXOL [Suspect]
     Indication: PSYCHOTIC DISORDER
     Dosage: 200 MG EVERY 3 WEEKS
     Route: 030
  4. ARIPIPRAZOLE [Concomitant]
     Indication: PSYCHOTIC DISORDER
     Dosage: GRADUALLY INCREASING THE DOSE TO 30 MG/DAY
     Route: 065

REACTIONS (4)
  - Amenorrhoea [Recovered/Resolved]
  - Extrapyramidal disorder [Recovering/Resolving]
  - Self-medication [Recovered/Resolved]
  - Condition aggravated [Recovered/Resolved]
